FAERS Safety Report 9438922 (Version 4)
Quarter: 2013Q4

REPORT INFORMATION
  Report Type: Report from Study
  Country: UA (occurrence: UA)
  Receive Date: 20130802
  Receipt Date: 20131126
  Transmission Date: 20140711
  Serious: Yes (Hospitalization)
  Sender: FDA-Public Use
  Company Number: UA-TEVA-422034USA

PATIENT
  Age: 61 Year
  Sex: Female
  Weight: 101 kg

DRUGS (16)
  1. BENDAMUSTINE [Suspect]
     Indication: CHRONIC LYMPHOCYTIC LEUKAEMIA
     Dosage: 147 MILLIGRAM DAILY; UID/QD
     Route: 042
     Dates: start: 20130612
  2. BENDAMUSTINE [Suspect]
     Dosage: 147 MILLIGRAM DAILY; UID/QD
     Route: 042
     Dates: start: 20130711
  3. RITUXIMAB [Suspect]
     Indication: CHRONIC LYMPHOCYTIC LEUKAEMIA
     Dosage: 1050 MILLIGRAM DAILY; UID/QD
     Route: 042
     Dates: start: 20130611
  4. RITUXIMAB [Suspect]
     Dosage: UID/QD
     Route: 042
     Dates: start: 20130710
  5. IBRUTINIB CAPSULE/PLACEBO [Suspect]
     Indication: CHRONIC LYMPHOCYTIC LEUKAEMIA
     Dosage: 420 MILLIGRAM DAILY;
     Route: 048
     Dates: start: 20130612
  6. IBRUTINIB CAPSULE/PLACEBO [Suspect]
     Dosage: 420 MILLIGRAM DAILY;
     Route: 048
     Dates: start: 20130710, end: 20130718
  7. IBRUTINIB CAPSULE/PLACEBO [Suspect]
     Dosage: 420 MILLIGRAM DAILY;
     Route: 048
     Dates: start: 20130725, end: 20130802
  8. INSULIN INSULATARD HUMAN [Concomitant]
     Indication: DIABETES MELLITUS
     Dosage: 6 IU (INTERNATIONAL UNIT) DAILY;
     Route: 058
     Dates: start: 20120318
  9. SIOFOR [Concomitant]
     Indication: DIABETES MELLITUS
     Dosage: 2000 MILLIGRAM DAILY;
     Dates: start: 20130318
  10. ALPHA-LIPON [Concomitant]
     Indication: PROPHYLAXIS
     Dosage: 600 MILLIGRAM DAILY;
     Route: 048
     Dates: start: 20130319
  11. DIPHENHYDRAMINE [Concomitant]
     Indication: PREMEDICATION
     Route: 042
     Dates: start: 20130710
  12. PANADOL [Concomitant]
     Indication: PREMEDICATION
     Route: 048
     Dates: start: 20130710
  13. DIAFORMIN [Concomitant]
     Indication: DIABETES MELLITUS
     Dosage: 1700 MILLIGRAM DAILY;
     Route: 048
     Dates: start: 20130710
  14. PREDNISOLONE [Concomitant]
     Indication: PREMEDICATION
     Route: 042
     Dates: start: 20130710
  15. ALLOPURINOL [Concomitant]
     Indication: PROPHYLAXIS
     Dosage: 300 MILLIGRAM DAILY;
     Route: 048
     Dates: start: 20130527
  16. THIOCTIC ACID [Concomitant]
     Indication: PROPHYLAXIS

REACTIONS (2)
  - Vasculitis [Recovered/Resolved]
  - Respiratory tract oedema [Recovered/Resolved]
